FAERS Safety Report 9166488 (Version 1)
Quarter: 2013Q1

REPORT INFORMATION
  Report Type: Spontaneous
  Country: LB (occurrence: LB)
  Receive Date: 20130315
  Receipt Date: 20130315
  Transmission Date: 20140127
  Serious: Yes (Life-Threatening, Hospitalization)
  Sender: FDA-Public Use
  Company Number: LB-ROXANE LABORATORIES, INC.-2013-RO-00381RO

PATIENT
  Age: 54 Year
  Sex: Female

DRUGS (6)
  1. QUETIAPINE FUMARATE [Suspect]
     Indication: BIPOLAR DISORDER
     Dosage: 300 MG
  2. LITHIUM CARBONATE [Suspect]
     Indication: BIPOLAR DISORDER
  3. ZOLPIDEM [Suspect]
     Dosage: 10 MG
  4. VALPROIC ACID [Suspect]
     Indication: BIPOLAR DISORDER
     Dosage: 1000 MG
  5. CHLORPROMAZINE [Suspect]
     Indication: BIPOLAR DISORDER
     Dosage: 300 MG
  6. BROMAZEPAM [Suspect]
     Dosage: 3 MG

REACTIONS (8)
  - Suicidal ideation [Recovered/Resolved]
  - Hypomania [Recovered/Resolved]
  - Depressed mood [Recovered/Resolved]
  - Anhedonia [Unknown]
  - Insomnia [Unknown]
  - Decreased appetite [Unknown]
  - Hypothyroidism [Unknown]
  - Drug resistance [Unknown]
